FAERS Safety Report 9580533 (Version 1)
Quarter: 2013Q4

REPORT INFORMATION
  Report Type: Spontaneous
  Country: US (occurrence: None)
  Receive Date: 20131001
  Receipt Date: 20131001
  Transmission Date: 20140711
  Serious: Yes (Hospitalization)
  Sender: FDA-Public Use
  Company Number: None

PATIENT
  Age: 78 Year
  Sex: Female
  Weight: 86 kg

DRUGS (2)
  1. GEMCITABINE HYDROCHLORIDE [Suspect]
  2. OSI-774 (ERLOTINIB; TARCEVA) [Suspect]

REACTIONS (2)
  - Pyrexia [None]
  - Conduction disorder [None]
